FAERS Safety Report 5907878-0 (Version None)
Quarter: 2008Q4

REPORT INFORMATION
  Report Type: 
  Country: None (occurrence: None)
  Receive Date: 20081003
  Receipt Date: 20080922
  Transmission Date: 20090506
  Serious: Yes (Other)
  Sender: FDA-Public Use
  Company Number: US-PFIZER INC-2008063853

PATIENT
  Sex: Female
  Weight: 73.5 kg

DRUGS (3)
  1. SUTENT [Suspect]
     Indication: RENAL CELL CARCINOMA
     Dates: start: 20080531
  2. POTASSIUM CHLORIDE [Concomitant]
  3. MAGNESIUM SULFATE [Concomitant]

REACTIONS (4)
  - HYPOTHYROIDISM [None]
  - MUSCLE SPASMS [None]
  - NO THERAPEUTIC RESPONSE [None]
  - WHITE BLOOD CELL COUNT DECREASED [None]
